FAERS Safety Report 15145014 (Version 2)
Quarter: 2018Q4

REPORT INFORMATION
  Report Type: Spontaneous
  Country: US (occurrence: US)
  Receive Date: 20180713
  Receipt Date: 20180803
  Transmission Date: 20190204
  Serious: No
  Sender: FDA-Public Use
  Company Number: US-TEVA-2018-US-925707

PATIENT
  Age: 18 Year
  Sex: Female

DRUGS (1)
  1. LEVALBUTEROL TARTRATE HFA INHALATION AEROSOL INHALER [Suspect]
     Active Substance: LEVALBUTEROL TARTRATE

REACTIONS (2)
  - Dyspnoea [Recovered/Resolved]
  - Drug ineffective [Unknown]

NARRATIVE: CASE EVENT DATE: 20180618
